FAERS Safety Report 24610944 (Version 1)
Quarter: 2024Q4

REPORT INFORMATION
  Report Type: Spontaneous
  Country: CO (occurrence: CO)
  Receive Date: 20241112
  Receipt Date: 20241112
  Transmission Date: 20250115
  Serious: Yes (Hospitalization, Other)
  Sender: SANDOZ
  Company Number: CO-002147023-NVSC2024CO118877

PATIENT
  Age: 85 Year
  Sex: Female
  Weight: 62 kg

DRUGS (2)
  1. EXELON [Suspect]
     Active Substance: RIVASTIGMINE TARTRATE
     Dosage: 1 DOSAGE FORM, QD (EXTENDED RELEASE, 18 MG, ONE PATCH)
     Route: 062
     Dates: start: 20240903
  2. EXELON [Suspect]
     Active Substance: RIVASTIGMINE TARTRATE
     Indication: Dementia Alzheimer^s type
     Dosage: 9 MG, QD (EXTENDED RELEASE, 9 MG ONE PATCH A DAY)
     Route: 062
     Dates: start: 20240425, end: 20240902

REACTIONS (20)
  - Respiratory tract infection [Not Recovered/Not Resolved]
  - Pyrexia [Recovering/Resolving]
  - Headache [Recovering/Resolving]
  - Urinary tract infection [Recovering/Resolving]
  - Respiratory distress [Recovering/Resolving]
  - Dacryostenosis acquired [Recovered/Resolved]
  - Chest pain [Recovering/Resolving]
  - Back pain [Recovering/Resolving]
  - Bronchitis [Recovering/Resolving]
  - Pyrexia [Recovered/Resolved]
  - Application site erythema [Recovering/Resolving]
  - Application site pruritus [Recovering/Resolving]
  - Abdominal discomfort [Recovering/Resolving]
  - Abdominal distension [Recovering/Resolving]
  - Symptom recurrence [Recovered/Resolved]
  - Vertigo [Recovered/Resolved]
  - Abdominal pain upper [Recovering/Resolving]
  - Dizziness [Recovered/Resolved]
  - Headache [Recovered/Resolved]
  - Decreased appetite [Recovering/Resolving]

NARRATIVE: CASE EVENT DATE: 20240430
